FAERS Safety Report 7190261-0 (Version None)
Quarter: 2010Q4

REPORT INFORMATION
  Report Type: 
  Country: None (occurrence: None)
  Receive Date: 20101223
  Receipt Date: 20101214
  Transmission Date: 20110411
  Serious: Yes (Death)
  Sender: FDA-Public Use
  Company Number: PHHY2010US87000

PATIENT

DRUGS (1)
  1. DESFERAL [Suspect]

REACTIONS (1)
  - CARDIAC DISORDER [None]
